FAERS Safety Report 6698039-9 (Version None)
Quarter: 2010Q2

REPORT INFORMATION
  Report Type: 
  Country: None (occurrence: None)
  Receive Date: 20100427
  Receipt Date: 20100413
  Transmission Date: 20101027
  Serious: Yes (Disabling)
  Sender: FDA-Public Use
  Company Number: SE-RANBAXY-2010RR-33262

PATIENT
  Age: 69 Year
  Sex: Female

DRUGS (3)
  1. ZOCOR [Suspect]
  2. TENORMIN [Concomitant]
  3. MAGNESIUM HYDROXIDE TAB [Concomitant]

REACTIONS (5)
  - AMYOTROPHIC LATERAL SCLEROSIS [None]
  - ASTHENIA [None]
  - BRACHIAL PLEXOPATHY [None]
  - MUSCLE CONTRACTIONS INVOLUNTARY [None]
  - PARAESTHESIA [None]
